FAERS Safety Report 4689386-0 (Version None)
Quarter: 2005Q2

REPORT INFORMATION
  Report Type: 
  Country: None (occurrence: None)
  Receive Date: 20050608
  Receipt Date: 20050210
  Transmission Date: 20051028
  Serious: No
  Sender: FDA-Public Use
  Company Number: 2005-BP-02228BP

PATIENT
  Age: 51 Year
  Sex: Male

DRUGS (23)
  1. SPIRIVA [Suspect]
     Indication: CHRONIC OBSTRUCTIVE PULMONARY DISEASE
     Dosage: 18 MCG (18 MCG), IH
     Route: 055
     Dates: start: 20040501
  2. SPIRIVA [Suspect]
  3. AVODART [Concomitant]
  4. ALPRAZOLAM [Concomitant]
  5. AMILORIDE DE HCL/HCTZ [Concomitant]
  6. ASPIRIN [Concomitant]
  7. CYCLOBENZAPRINE HCL [Concomitant]
  8. HYDROCODONE/APA [Concomitant]
  9. IBUPROFEN [Concomitant]
  10. MULTI-VITAMIN [Concomitant]
  11. MIGRANAL [Concomitant]
  12. NITRO QUICK [Concomitant]
  13. PROTONIX [Concomitant]
  14. POTASSIUM CHLORIDE [Concomitant]
  15. SINGULAIR (MONTELUKAST) [Concomitant]
  16. TRICOR [Concomitant]
  17. TORSEMIDE (TORASEMIDE) [Concomitant]
  18. ULTRACET (ULTRACET) [Concomitant]
  19. VYTORIN [Concomitant]
  20. ALBUTEROL [Concomitant]
  21. FLOVENT [Concomitant]
  22. IPRATROPIUM BR [Concomitant]
  23. CEPHALEXIN [Concomitant]

REACTIONS (1)
  - AGEUSIA [None]
